FAERS Safety Report 18013216 (Version 7)
Quarter: 2022Q2

REPORT INFORMATION
  Report Type: Spontaneous
  Country: US (occurrence: US)
  Receive Date: 20200713
  Receipt Date: 20220425
  Transmission Date: 20220720
  Serious: Yes (Other)
  Sender: FDA-Public Use
  Company Number: US-PFIZER INC-2019508912

PATIENT
  Age: 67 Year
  Sex: Female

DRUGS (3)
  1. XELJANZ XR [Suspect]
     Active Substance: TOFACITINIB CITRATE
     Dosage: 11 MG, 1X/DAY
     Route: 048
  2. XELJANZ XR [Suspect]
     Active Substance: TOFACITINIB CITRATE
     Dosage: 11 MG, ALTERNATE DAY
     Route: 048
  3. XELJANZ XR [Suspect]
     Active Substance: TOFACITINIB CITRATE
     Dosage: 11 MG, 1X/DAY (FOR  90 DAYS)
     Route: 048

REACTIONS (11)
  - Intentional self-injury [Unknown]
  - Dysphonia [Unknown]
  - Sneezing [Unknown]
  - Memory impairment [Unknown]
  - Panic reaction [Unknown]
  - Headache [Unknown]
  - Pain in extremity [Unknown]
  - Hepatic enzyme increased [Unknown]
  - Hypokinesia [Unknown]
  - Inability to crawl [Unknown]
  - Intentional product misuse [Unknown]
